FAERS Safety Report 13757858 (Version 1)
Quarter: 2017Q3

REPORT INFORMATION
  Report Type: Spontaneous
  Country: US (occurrence: US)
  Receive Date: 20170717
  Receipt Date: 20170717
  Transmission Date: 20171127
  Serious: No
  Sender: FDA-Public Use
  Company Number: US-SHIRE-US201714214

PATIENT
  Sex: Female

DRUGS (1)
  1. XIIDRA [Suspect]
     Active Substance: LIFITEGRAST
     Indication: DRY EYE
     Dosage: UNK
     Route: 065

REACTIONS (7)
  - Instillation site pain [Unknown]
  - Visual impairment [Unknown]
  - Nausea [Unknown]
  - Headache [Unknown]
  - Instillation site discomfort [Unknown]
  - Instillation site irritation [Unknown]
  - Dysgeusia [Unknown]
